FAERS Safety Report 15648311 (Version 1)
Quarter: 2018Q4

REPORT INFORMATION
  Report Type: Spontaneous
  Country: US (occurrence: US)
  Receive Date: 20181122
  Receipt Date: 20181122
  Transmission Date: 20190205
  Serious: No
  Sender: FDA-Public Use
  Company Number: US-PFIZER INC-2018476558

PATIENT
  Age: 40 Year
  Sex: Female

DRUGS (1)
  1. ALPRAZOLAM. [Suspect]
     Active Substance: ALPRAZOLAM
     Dosage: UNK
     Dates: start: 201804

REACTIONS (5)
  - Drug effect decreased [Unknown]
  - Osteoporosis [Unknown]
  - Neck pain [Unknown]
  - Back pain [Unknown]
  - Hypopituitarism [Unknown]

NARRATIVE: CASE EVENT DATE: 2018
